FAERS Safety Report 21425832 (Version 1)
Quarter: 2022Q4

REPORT INFORMATION
  Report Type: Spontaneous
  Country: DE (occurrence: DE)
  Receive Date: 20221008
  Receipt Date: 20221008
  Transmission Date: 20230113
  Serious: Yes (Hospitalization)
  Sender: FDA-Public Use
  Company Number: DE-ADRED-08367-01

PATIENT
  Age: 88 Year
  Sex: Male

DRUGS (3)
  1. RIVASTIGMINE [Suspect]
     Active Substance: RIVASTIGMINE
     Indication: Product used for unknown indication
     Dosage: 4.6 MILLIGRAM DAILY; 4.6MG/DAY, 1-0-0-0
     Route: 065
  2. CANDESARTAN CILEXETIL\HYDROCHLOROTHIAZIDE [Concomitant]
     Active Substance: CANDESARTAN CILEXETIL\HYDROCHLOROTHIAZIDE
     Indication: Product used for unknown indication
     Dosage: 1 DOSAGE FORMS DAILY; 16|12.5 MG, 1-0-0-0
  3. ASPIRIN [Concomitant]
     Active Substance: ASPIRIN
     Indication: Product used for unknown indication
     Dosage: 100 MILLIGRAM DAILY; 100 MG, 0-1-0-0

REACTIONS (14)
  - General physical health deterioration [Unknown]
  - Anaemia [Unknown]
  - Condition aggravated [Unknown]
  - Renal impairment [Unknown]
  - Loss of consciousness [Unknown]
  - Agitation [Unknown]
  - Bradycardia [Unknown]
  - Confusional state [Unknown]
  - Restlessness [Unknown]
  - Paresis [Unknown]
  - Electrocardiogram abnormal [Unknown]
  - Depressed level of consciousness [Unknown]
  - Syncope [Unknown]
  - Seizure [Unknown]
